FAERS Safety Report 19823915 (Version 1)
Quarter: 2021Q3

REPORT INFORMATION
  Report Type: Spontaneous
  Country: US (occurrence: US)
  Receive Date: 20210914
  Receipt Date: 20210914
  Transmission Date: 20211014
  Serious: Yes (Hospitalization)
  Sender: FDA-Public Use
  Company Number: US-009507513-2109USA000748

PATIENT

DRUGS (1)
  1. STROMECTOL [Suspect]
     Active Substance: IVERMECTIN
     Indication: COVID-19
     Dosage: FIVE TABLETS A DAY

REACTIONS (2)
  - Product use in unapproved indication [Unknown]
  - Mental status changes [Recovering/Resolving]
